FAERS Safety Report 21933812 (Version 2)
Quarter: 2023Q1

REPORT INFORMATION
  Report Type: Spontaneous
  Country: PH (occurrence: None)
  Receive Date: 20230201
  Receipt Date: 20230210
  Transmission Date: 20230418
  Serious: Yes (Death)
  Sender: FDA-Public Use
  Company Number: PH-ROCHE-3273076

PATIENT
  Age: 3 Year
  Sex: Male
  Weight: 17 kg

DRUGS (10)
  1. HEMLIBRA [Suspect]
     Active Substance: EMICIZUMAB-KXWH
     Indication: Factor VIII deficiency
     Dosage: ONCE A WEEK FOR 4 WEEKS AS LOADING DOSE
     Route: 058
     Dates: start: 20221117, end: 20221207
  2. HEMLIBRA [Suspect]
     Active Substance: EMICIZUMAB-KXWH
     Dosage: AS MAINTENANCE DOSE,
     Route: 058
     Dates: start: 20221215, end: 20221215
  3. HEMLIBRA [Suspect]
     Active Substance: EMICIZUMAB-KXWH
     Route: 058
     Dates: start: 20230118, end: 20230118
  4. LACOSAMIDE [Concomitant]
     Active Substance: LACOSAMIDE
     Indication: Seizure
     Route: 048
     Dates: start: 201905, end: 20230123
  5. FERROUS SULFATE [Concomitant]
     Active Substance: FERROUS SULFATE
  6. FOLART [Concomitant]
  7. MOSEGOR VITA [Concomitant]
  8. TRANEXAMIC ACID [Concomitant]
     Active Substance: TRANEXAMIC ACID
  9. ACETAMINOPHEN [Concomitant]
     Active Substance: ACETAMINOPHEN
  10. LACTULOSE [Concomitant]
     Active Substance: LACTULOSE
     Indication: Constipation

REACTIONS (3)
  - Gingival bleeding [Fatal]
  - Shock [Fatal]
  - Pyrexia [Recovered/Resolved]

NARRATIVE: CASE EVENT DATE: 20221231
